FAERS Safety Report 5466868-5 (Version None)
Quarter: 2007Q3

REPORT INFORMATION
  Report Type: 
  Country: None (occurrence: None)
  Receive Date: 20070925
  Receipt Date: 20070917
  Transmission Date: 20080115
  Serious: Yes (Hospitalization)
  Sender: FDA-Public Use
  Company Number: US-JNJFOC-20070903957

PATIENT
  Sex: Female
  Weight: 61.69 kg

DRUGS (1)
  1. DURAGESIC-100 [Suspect]
     Indication: PAIN
     Route: 062

REACTIONS (5)
  - BACK PAIN [None]
  - FEELING COLD [None]
  - NAUSEA [None]
  - TREMOR [None]
  - VOMITING [None]
